FAERS Safety Report 20607249 (Version 1)
Quarter: 2022Q1

REPORT INFORMATION
  Report Type: Spontaneous
  Country: IT (occurrence: IT)
  Receive Date: 20220317
  Receipt Date: 20220317
  Transmission Date: 20220423
  Serious: Yes (Life-Threatening, Hospitalization, Other)
  Sender: FDA-Public Use
  Company Number: None

PATIENT
  Age: 13 Year
  Sex: Male
  Weight: 44 kg

DRUGS (52)
  1. DOXORUBICIN [Suspect]
     Active Substance: DOXORUBICIN
     Indication: Acute lymphocytic leukaemia
     Dosage: 44.1 MILLIGRAM, QD (44.1 MG, QD)
     Route: 042
     Dates: start: 20170220, end: 20170220
  2. VINCRISTINE [Suspect]
     Active Substance: VINCRISTINE
     Indication: Acute lymphocytic leukaemia
     Dosage: 2 MILLIGRAM, QD (2 MG, QD (EV ROUTE))
     Route: 050
     Dates: start: 20161011, end: 20161011
  3. VINCRISTINE [Suspect]
     Active Substance: VINCRISTINE
     Dosage: 2 MILLIGRAM, QD (2 MG, QD)
     Route: 050
     Dates: start: 20161016, end: 20161016
  4. VINCRISTINE [Suspect]
     Active Substance: VINCRISTINE
     Dosage: 2 MILLIGRAM, CYCLE (2 MG, CYCLIC)
     Route: 042
     Dates: start: 20170102, end: 20170223
  5. VINCRISTINE [Suspect]
     Active Substance: VINCRISTINE
     Dosage: 2 MILLIGRAM, CYCLE (2 MG, CYCLIC)
     Route: 042
     Dates: start: 20170123, end: 20170220
  6. VINCRISTINE [Suspect]
     Active Substance: VINCRISTINE
     Dosage: 2 MILLIGRAM (2 MG)
     Route: 042
     Dates: start: 20170220, end: 20170220
  7. VINCRISTINE [Suspect]
     Active Substance: VINCRISTINE
     Dosage: 2 MILLIGRAM (2 MG, (EV ROUTE))
     Route: 050
     Dates: start: 20170619, end: 20170619
  8. ERWINASE [Suspect]
     Active Substance: ASPARAGINASE ERWINIA CHRYSANTHEMI
     Indication: Product used for unknown indication
     Dosage: 30000 MICROLITER, QD (30000 UL, QD (EV ROUTE))
     Route: 050
     Dates: start: 20161215, end: 20161227
  9. ERWINASE [Suspect]
     Active Substance: ASPARAGINASE ERWINIA CHRYSANTHEMI
     Dosage: UNK
     Route: 065
  10. ASPARAGINASE [Suspect]
     Active Substance: ASPARAGINASE
     Indication: Acute lymphocytic leukaemia
     Dosage: 29400 INTERNATIONAL UNIT, CYCLE (29400 IU, CYCLIC)
     Route: 042
     Dates: start: 20170126, end: 20170130
  11. ASPARAGINASE [Suspect]
     Active Substance: ASPARAGINASE
     Dosage: 29400 INTERNATIONAL UNIT, CYCLE (29400 IU, CYCLIC)
     Route: 065
     Dates: start: 20170126, end: 20170202
  12. DOXORUBICIN [Suspect]
     Active Substance: DOXORUBICIN
     Indication: Acute lymphocytic leukaemia
     Dosage: 44.1 MILLIGRAM, CYCLE (44.1 MG, (CYCLIC))
     Route: 042
     Dates: start: 20170123, end: 20170220
  13. DOXORUBICIN [Suspect]
     Active Substance: DOXORUBICIN
     Dosage: 44.1 MILLIGRAM, CYCLE (44.1 MG, (CYCLIC))
     Route: 042
     Dates: end: 20170220
  14. DOXORUBICIN [Suspect]
     Active Substance: DOXORUBICIN
     Dosage: 34.5 MILLIGRAM (34.5 MG, (EV ROUTE))
     Dates: start: 20170619, end: 20170619
  15. GLIVEC [Suspect]
     Active Substance: IMATINIB MESYLATE
     Indication: Philadelphia chromosome positive
     Dosage: 400 MILLIGRAM, QD (400 MG, QD)
     Route: 048
  16. GLIVEC [Suspect]
     Active Substance: IMATINIB MESYLATE
     Indication: Acute lymphocytic leukaemia
     Dosage: 440 MILLIGRAM (440 MG)
     Route: 048
  17. GLIVEC [Suspect]
     Active Substance: IMATINIB MESYLATE
     Dosage: 300 OT, UNK
     Route: 048
     Dates: start: 20160721
  18. GLIVEC [Suspect]
     Active Substance: IMATINIB MESYLATE
     Dosage: UNK
     Route: 048
     Dates: start: 20161219
  19. GLIVEC [Suspect]
     Active Substance: IMATINIB MESYLATE
     Dosage: 500 MILLIGRAM, QD (500 MG, QD)
     Route: 048
     Dates: start: 20170102, end: 20170223
  20. GLIVEC [Suspect]
     Active Substance: IMATINIB MESYLATE
     Dosage: 441 MILLIGRAM, QD (441 MG, QD)
     Route: 048
     Dates: start: 20170102
  21. GLIVEC [Suspect]
     Active Substance: IMATINIB MESYLATE
     Dosage: 500 MG ALTERNATED WITH 400 MG DAILY (CYCLIC),QD
     Route: 048
     Dates: start: 20170121
  22. METHYLPREDNISOLONE [Concomitant]
     Active Substance: METHYLPREDNISOLONE
     Indication: Product used for unknown indication
     Dosage: 1540 MICROLITER, QD (1540 ?L, QD)
     Route: 065
     Dates: start: 20161016, end: 20161016
  23. METHYLPREDNISOLONE [Concomitant]
     Active Substance: METHYLPREDNISOLONE
     Dosage: 10 MILLIGRAM, QD (10 MG, QD)
     Route: 037
     Dates: start: 20161214, end: 20161214
  24. METHOTREXATE [Concomitant]
     Active Substance: METHOTREXATE
     Indication: Product used for unknown indication
     Dosage: 12 MILLIGRAM, QD (12 MG QD)
     Route: 037
     Dates: start: 20161011, end: 20161011
  25. METHOTREXATE [Concomitant]
     Active Substance: METHOTREXATE
     Dosage: 7700 MILLIGRAM, QD (7700 MG QD)
     Dates: start: 20161011, end: 20161011
  26. METHOTREXATE [Concomitant]
     Active Substance: METHOTREXATE
     Dosage: UNK
     Dates: start: 20161108
  27. ACYCLOVIR SODIUM [Concomitant]
     Active Substance: ACYCLOVIR SODIUM
     Indication: Product used for unknown indication
     Dosage: 500 MILLIGRAM, Q8H (500 MG, TID)
     Route: 042
  28. RANITIDINE [Concomitant]
     Active Substance: RANITIDINE
     Indication: Product used for unknown indication
     Dosage: 150 MILLIGRAM (150 MG, UNK)
     Route: 065
  29. BETAMETHASONE VALERATE\FUSIDIC ACID [Concomitant]
     Active Substance: BETAMETHASONE VALERATE\FUSIDIC ACID
     Indication: Product used for unknown indication
     Dosage: UNK UNK, TID (UNK UNK, TID)
  30. DEXAMETHASONE [Concomitant]
     Active Substance: DEXAMETHASONE
     Indication: Product used for unknown indication
     Dosage: UNK
     Route: 065
  31. DEXAMETHASONE [Concomitant]
     Active Substance: DEXAMETHASONE
     Dosage: 30 MILLIGRAM, QD (30 MG, QD (EV ROUTE))
     Route: 065
     Dates: start: 20161011, end: 20161015
  32. DEXAMETHASONE [Concomitant]
     Active Substance: DEXAMETHASONE
     Dosage: 13.8 MILLIGRAM (13.8 MG)
     Route: 048
     Dates: start: 20170605, end: 20170629
  33. MYCOSTATIN [Concomitant]
     Active Substance: NYSTATIN
     Indication: Product used for unknown indication
     Dosage: UNK
     Route: 065
  34. CYCLOPHOSPHAMIDE [Concomitant]
     Active Substance: CYCLOPHOSPHAMIDE
     Indication: Product used for unknown indication
     Dosage: 308 MILLIGRAM, QD (308 MG, QD (EV ROUTE))
     Dates: start: 20161012, end: 20161014
  35. PEGASPARGASE [Concomitant]
     Active Substance: PEGASPARGASE
     Indication: Product used for unknown indication
     Dosage: 1540 MICROLITER, QD (1540 ?L, QD QD (EV ROUTE))
     Route: 065
     Dates: start: 20161016, end: 20161016
  36. POTASSIUM CHLORIDE [Concomitant]
     Active Substance: POTASSIUM CHLORIDE
     Indication: Product used for unknown indication
     Dosage: UNK
     Route: 042
  37. CEFTAZIDIME [Concomitant]
     Active Substance: CEFTAZIDIME
     Indication: Product used for unknown indication
     Dosage: UNK
     Route: 065
  38. CEFTAZIDIME [Concomitant]
     Active Substance: CEFTAZIDIME
     Dosage: 1800 MILLIGRAM, TID (1800 MG, TID (EV ROUTE))
     Dates: start: 20170702, end: 20170708
  39. CEFTAZIDIME [Concomitant]
     Active Substance: CEFTAZIDIME
     Dosage: 1800 MILLIGRAM, TID (1800 MG, TID (EV ROUTE))
  40. ETOPOSIDE [Concomitant]
     Active Substance: ETOPOSIDE
     Indication: Product used for unknown indication
     Dosage: 154 MILLIGRAM, BID (154 MG, BID)
     Route: 065
     Dates: start: 20161212, end: 20161214
  41. BACTRIM [Concomitant]
     Active Substance: SULFAMETHOXAZOLE\TRIMETHOPRIM
     Indication: Product used for unknown indication
     Dosage: 2 DOSAGE FORM, QD (2 DF, QD)
     Route: 065
  42. OMEPRAZOLE [Concomitant]
     Active Substance: OMEPRAZOLE
     Indication: Product used for unknown indication
     Dosage: 40 MILLIGRAM (40 MG, UNK)
     Route: 042
  43. ENALAPRIL MALEATE [Concomitant]
     Active Substance: ENALAPRIL MALEATE
     Indication: Product used for unknown indication
     Dosage: 10 MILLIGRAM, QD (10 MG, QD)
     Route: 065
  44. ENALAPRIL MALEATE [Concomitant]
     Active Substance: ENALAPRIL MALEATE
     Dosage: UNK
     Route: 065
     Dates: start: 20170205
  45. ZANTAC [Concomitant]
     Active Substance: RANITIDINE HYDROCHLORIDE
     Indication: Product used for unknown indication
     Dosage: UNK
     Route: 065
  46. LENOGRASTIM [Concomitant]
     Active Substance: LENOGRASTIM
     Indication: Product used for unknown indication
     Dosage: UNK
     Route: 065
  47. CIPROFLOXACIN [Concomitant]
     Active Substance: CIPROFLOXACIN
     Indication: Product used for unknown indication
     Dosage: 500 MILLIGRAM, BID (500 MG, BID)
     Route: 065
  48. AMIKACIN [Concomitant]
     Active Substance: AMIKACIN
     Indication: Product used for unknown indication
     Dosage: 1 GRAM (1 G, UNK)
     Route: 042
  49. AMOXICILLIN\CLAVULANATE POTASSIUM [Concomitant]
     Active Substance: AMOXICILLIN\CLAVULANATE POTASSIUM
     Indication: Product used for unknown indication
     Dosage: 1 DOSAGE FORM, BID (1 DF, BID)
     Route: 065
  50. POTASSIUM CHLORIDE [Concomitant]
     Active Substance: POTASSIUM CHLORIDE
     Indication: Product used for unknown indication
     Dosage: 4 DOSAGE FORM, QD (4 DF, QD)
     Route: 065
  51. POTASSIUM CHLORIDE [Concomitant]
     Active Substance: POTASSIUM CHLORIDE
     Dosage: UNK
  52. DIFLUCAN [Concomitant]
     Active Substance: FLUCONAZOLE
     Indication: Product used for unknown indication
     Dosage: 400 MILLIGRAM (400 MG, UNK)
     Route: 042

REACTIONS (7)
  - Pulmonary mass [Unknown]
  - Bone marrow failure [Recovered/Resolved]
  - Pyrexia [Recovered/Resolved]
  - Anaemia [Recovering/Resolving]
  - Aplasia [Recovered/Resolved]
  - Haemoglobin decreased [Unknown]
  - Leukopenia [Recovering/Resolving]

NARRATIVE: CASE EVENT DATE: 20170223
